FAERS Safety Report 11181677 (Version 6)
Quarter: 2015Q3

REPORT INFORMATION
  Report Type: Spontaneous
  Country: IT (occurrence: IT)
  Receive Date: 20150611
  Receipt Date: 20150831
  Transmission Date: 20151125
  Serious: Yes (Death, Hospitalization, Other)
  Sender: FDA-Public Use
  Company Number: IT-GILEAD-2015-0157199

PATIENT
  Age: 57 Year
  Sex: Male

DRUGS (8)
  1. OLYSIO [Suspect]
     Active Substance: SIMEPREVIR
     Indication: HEPATITIS C
     Dosage: 150 MG, QD
     Route: 048
     Dates: start: 20150417, end: 20150618
  2. ALDACTONE [Concomitant]
     Active Substance: SPIRONOLACTONE
     Dosage: 1 DF, UNK
  3. DIBASE [Concomitant]
     Active Substance: CHOLECALCIFEROL
     Dosage: 30 GTT, UNK
  4. LAMIVUDINE MYLAN [Concomitant]
     Indication: HIV INFECTION
     Dosage: 1 DF, UNK
     Route: 048
     Dates: start: 20150317
  5. PORTOLAC [Concomitant]
     Active Substance: LACTITOL
     Dosage: 4 DF, UNK
     Route: 048
  6. RIFACOL [Concomitant]
     Active Substance: RIFAXIMIN
     Dosage: 2 DF, UNK
     Route: 048
  7. SOVALDI [Suspect]
     Active Substance: SOFOSBUVIR
     Indication: HEPATITIS C
     Dosage: 400 MG, QD
     Route: 048
     Dates: start: 20150417, end: 20150707
  8. TIVICAY [Concomitant]
     Active Substance: DOLUTEGRAVIR SODIUM
     Indication: HIV INFECTION
     Dosage: 1 DF, UNK
     Route: 048
     Dates: start: 20150317

REACTIONS (2)
  - Hepatorenal syndrome [Fatal]
  - Ascites [Fatal]

NARRATIVE: CASE EVENT DATE: 20150512
